FAERS Safety Report 14316565 (Version 2)
Quarter: 2018Q2

REPORT INFORMATION
  Report Type: Spontaneous
  Country: US (occurrence: US)
  Receive Date: 20171222
  Receipt Date: 20180622
  Transmission Date: 20180711
  Serious: No
  Sender: FDA-Public Use
  Company Number: US-TEVA-2017-US-830994

PATIENT
  Sex: Female

DRUGS (11)
  1. BIOTIN [Concomitant]
     Active Substance: BIOTIN
     Route: 065
     Dates: start: 20161219
  2. COPAXONE [Suspect]
     Active Substance: GLATIRAMER ACETATE
     Indication: MULTIPLE SCLEROSIS
     Route: 058
     Dates: start: 20110922
  3. MULTI VITAMIN [Concomitant]
     Active Substance: VITAMINS
     Route: 065
     Dates: start: 20171219
  4. PRILOSEC [Concomitant]
     Active Substance: OMEPRAZOLE MAGNESIUM
     Route: 065
     Dates: start: 20160705
  5. PERCOCET [Concomitant]
     Active Substance: ACETAMINOPHEN\OXYCODONE HYDROCHLORIDE
     Dosage: 10-325MG
     Route: 065
     Dates: start: 20110919
  6. IRON [Concomitant]
     Active Substance: IRON
     Route: 065
     Dates: start: 20161219
  7. VITAMIN D3 [Concomitant]
     Active Substance: CHOLECALCIFEROL
     Route: 065
     Dates: start: 20161219
  8. GARLIC. [Concomitant]
     Active Substance: GARLIC
     Route: 065
     Dates: start: 20161219
  9. NUVIGIL [Concomitant]
     Active Substance: ARMODAFINIL
     Route: 065
     Dates: start: 20160705
  10. LYRICA [Concomitant]
     Active Substance: PREGABALIN
     Route: 065
     Dates: start: 20160801
  11. VITAMIN B12 [Concomitant]
     Active Substance: CYANOCOBALAMIN
     Route: 065
     Dates: start: 20161219

REACTIONS (5)
  - Burning sensation [Not Recovered/Not Resolved]
  - Asthenia [Not Recovered/Not Resolved]
  - Fatigue [Not Recovered/Not Resolved]
  - Vision blurred [Not Recovered/Not Resolved]
  - Movement disorder [Not Recovered/Not Resolved]
